FAERS Safety Report 12134930 (Version 1)
Quarter: 2016Q1

REPORT INFORMATION
  Report Type: Spontaneous
  Country: JP (occurrence: JP)
  Receive Date: 20160301
  Receipt Date: 20160301
  Transmission Date: 20160526
  Serious: Yes (Death, Other)
  Sender: FDA-Public Use
  Company Number: JP-PFIZER INC-2016109529

PATIENT
  Sex: Male

DRUGS (4)
  1. MEROPENEM. [Suspect]
     Active Substance: MEROPENEM
     Indication: INTERSTITIAL LUNG DISEASE
     Dosage: UNK
     Dates: start: 20160104
  2. APIXABAN [Concomitant]
     Active Substance: APIXABAN
     Indication: ATRIAL FIBRILLATION
     Dosage: UNK
     Route: 048
     Dates: start: 20150728
  3. AMPICILLIN SODIUM/SULBACTAM SODIUM [Suspect]
     Active Substance: AMPICILLIN SODIUM\SULBACTAM SODIUM
     Indication: INTERSTITIAL LUNG DISEASE
     Dosage: 3 G X 3/DAY
  4. VANCOMYCIN [Suspect]
     Active Substance: VANCOMYCIN
     Indication: INTERSTITIAL LUNG DISEASE
     Dosage: UNK
     Dates: start: 20160113

REACTIONS (2)
  - Interstitial lung disease [Fatal]
  - Drug ineffective [Fatal]

NARRATIVE: CASE EVENT DATE: 201601
